FAERS Safety Report 8221428-8 (Version None)
Quarter: 2012Q1

REPORT INFORMATION
  Report Type: 
  Country: None (occurrence: None)
  Receive Date: 20120320
  Receipt Date: 20120313
  Transmission Date: 20120608
  Serious: Yes (Life-Threatening, Hospitalization)
  Sender: FDA-Public Use
  Company Number: JP-PFIZER INC-2012031843

PATIENT
  Age: 63 Year
  Sex: Male
  Weight: 59.7 kg

DRUGS (10)
  1. XYZAL [Concomitant]
     Indication: RHINITIS ALLERGIC
     Dosage: UNK
     Route: 048
     Dates: start: 20110411, end: 20110425
  2. METFORMIN HCL [Concomitant]
     Indication: DIABETES MELLITUS
     Dosage: UNK
     Route: 048
     Dates: start: 20110509
  3. ALLEGRA [Concomitant]
     Indication: RHINITIS ALLERGIC
     Dosage: UNK
     Route: 048
     Dates: start: 20110309, end: 20110411
  4. JANUVIA [Concomitant]
     Indication: DIABETES MELLITUS
     Dosage: UNK
     Route: 048
     Dates: start: 20110809
  5. ASPIRIN [Concomitant]
     Indication: CORONARY ARTERY BYPASS
     Dosage: UNK
     Route: 048
     Dates: start: 20110712
  6. GLIMICRON [Concomitant]
     Indication: DIABETES MELLITUS
     Dosage: UNK
     Route: 048
     Dates: start: 20110606
  7. ATORVASTATIN CALCIUM [Suspect]
     Indication: HYPERCHOLESTEROLAEMIA
     Dosage: 10 MG, UID/QD
     Route: 048
     Dates: start: 20110309
  8. MICARDIS [Concomitant]
     Dosage: UNK
     Route: 048
     Dates: start: 20110309
  9. LANSOPRAZOLE [Concomitant]
     Indication: CORONARY ARTERY BYPASS
     Dosage: UNK
     Dates: start: 20110712
  10. GLIMICRON [Concomitant]
     Dosage: UNK
     Route: 048
     Dates: start: 20110613, end: 20110809

REACTIONS (1)
  - ARTERIOSCLEROSIS CORONARY ARTERY [None]
